FAERS Safety Report 25412008 (Version 1)
Quarter: 2025Q2

REPORT INFORMATION
  Report Type: Spontaneous
  Country: GB (occurrence: GB)
  Receive Date: 20250609
  Receipt Date: 20250609
  Transmission Date: 20250716
  Serious: Yes (Hospitalization, Congenital Anomaly, Other)
  Sender: ORGANON
  Company Number: GB-ORGANON-O2506GBR000381

PATIENT
  Age: 0 Year
  Sex: Male
  Weight: 3.798 kg

DRUGS (1)
  1. NEXPLANON [Suspect]
     Active Substance: ETONOGESTREL
     Route: 064
     Dates: start: 20210721

REACTIONS (3)
  - Premature baby [Unknown]
  - Hernia congenital [Recovered/Resolved]
  - Foetal exposure during pregnancy [Recovered/Resolved]

NARRATIVE: CASE EVENT DATE: 20241029
